FAERS Safety Report 4397334-6 (Version None)
Quarter: 2004Q3

REPORT INFORMATION
  Report Type: 
  Country: None (occurrence: None)
  Receive Date: 20040714
  Receipt Date: 20040701
  Transmission Date: 20050211
  Serious: Yes (Other)
  Sender: FDA-Public Use
  Company Number: JP-GLAXOSMITHKLINE-B0338264A

PATIENT
  Sex: Female

DRUGS (6)
  1. PAXIL [Suspect]
     Indication: DEPRESSION
     Route: 048
     Dates: start: 20040510, end: 20040630
  2. LIMAS [Suspect]
     Dosage: 400MG PER DAY
     Route: 048
     Dates: start: 20040626, end: 20040630
  3. HIRNAMIN [Suspect]
     Dosage: 15MG PER DAY
     Route: 065
     Dates: start: 20040626, end: 20040630
  4. LEXOTAN [Suspect]
     Dosage: 6MG PER DAY
     Route: 048
     Dates: start: 20040626, end: 20040630
  5. EVAMYL [Concomitant]
     Dosage: 1MG PER DAY
     Route: 048
     Dates: start: 20040603, end: 20040630
  6. CHLORPROMAZINE [Concomitant]
     Dosage: 37.5MG PER DAY
     Route: 048
     Dates: start: 20040601, end: 20040626

REACTIONS (5)
  - ALANINE AMINOTRANSFERASE INCREASED [None]
  - ASPARTATE AMINOTRANSFERASE INCREASED [None]
  - BLOOD ALKALINE PHOSPHATASE INCREASED [None]
  - GAMMA-GLUTAMYLTRANSFERASE INCREASED [None]
  - HEPATIC FUNCTION ABNORMAL [None]
